FAERS Safety Report 7183850-0 (Version None)
Quarter: 2010Q4

REPORT INFORMATION
  Report Type: 
  Country: None (occurrence: None)
  Receive Date: 20101222
  Receipt Date: 20101214
  Transmission Date: 20110411
  Serious: Yes (Other)
  Sender: FDA-Public Use
  Company Number: SE-JNJFOC-20090400944

PATIENT
  Age: 36 Year
  Sex: Female
  Weight: 70 kg

DRUGS (7)
  1. REMICADE [Suspect]
     Indication: CROHN'S DISEASE
     Dosage: 2 INFUSIONS ADMINISTERED
     Route: 042
  2. REMICADE [Suspect]
     Route: 042
  3. IMUREL [Concomitant]
     Indication: CROHN'S DISEASE
     Route: 065
  4. IMUREL [Concomitant]
     Route: 065
  5. ENTOCORT EC [Concomitant]
     Route: 065
  6. ACETASOL [Concomitant]
     Route: 065
  7. PENTASA [Concomitant]
     Route: 054

REACTIONS (6)
  - DRUG INEFFECTIVE [None]
  - ERYTHEMA [None]
  - FEELING HOT [None]
  - MYALGIA [None]
  - POLYARTHRITIS [None]
  - PROCTITIS [None]
